FAERS Safety Report 9939091 (Version 1)
Quarter: 2014Q1

REPORT INFORMATION
  Report Type: Report from Study
  Country: US (occurrence: US)
  Receive Date: 20140303
  Receipt Date: 20140303
  Transmission Date: 20141002
  Serious: No
  Sender: FDA-Public Use
  Company Number: US-ABBVIE-13P-163-1033988-00

PATIENT
  Age: 62 Year
  Sex: Male

DRUGS (10)
  1. HUMIRA [Suspect]
     Indication: RHEUMATOID ARTHRITIS
     Dates: start: 20130108
  2. METHOTREXATE [Concomitant]
     Indication: RHEUMATOID ARTHRITIS
     Dosage: 3 TABLETS WEEKLY
  3. LIPITOR [Concomitant]
     Indication: BLOOD CHOLESTEROL INCREASED
     Dosage: AT DINNER TIME
  4. AMLODIPINE [Concomitant]
     Indication: HYPERTENSION
     Dosage: AT BEDTIME
  5. BEGINS WITH V MEDICATION [Concomitant]
     Indication: HYPERTENSION
     Dosage: AT BEDTIME; V MEDICATION IN EXFORGE IN COMBO WITH AMLODIPINE
  6. PRILOSEC [Concomitant]
     Indication: ULCER
     Dosage: IN THE MORNING
  7. IRON [Concomitant]
     Indication: ANAEMIA
  8. FOLIC ACID [Concomitant]
     Indication: PRODUCT USED FOR UNKNOWN INDICATION
     Dosage: DAILY
  9. CELEBREX [Concomitant]
     Indication: PRODUCT USED FOR UNKNOWN INDICATION
  10. MULTIVITAMIN [Concomitant]
     Indication: PRODUCT USED FOR UNKNOWN INDICATION
     Dosage: DAILY

REACTIONS (1)
  - Injection site pain [Recovered/Resolved]
